FAERS Safety Report 24963347 (Version 2)
Quarter: 2025Q1

REPORT INFORMATION
  Report Type: Report from Study
  Country: US (occurrence: US)
  Receive Date: 20250213
  Receipt Date: 20250324
  Transmission Date: 20250409
  Serious: No
  Sender: SANDOZ
  Company Number: US-SANDOZ-SDZ2025US007416

PATIENT
  Age: 15 Year
  Sex: Male

DRUGS (4)
  1. OMNITROPE [Suspect]
     Active Substance: SOMATROPIN
     Indication: Short stature
     Dosage: 2 MG , QD
     Route: 058
     Dates: start: 20250205, end: 20250205
  2. OMNITROPE [Suspect]
     Active Substance: SOMATROPIN
     Indication: Short stature
     Dosage: 2 MG , QD
     Route: 058
     Dates: start: 20250205, end: 20250205
  3. OMNITROPE [Suspect]
     Active Substance: SOMATROPIN
     Dosage: 2 MG , QD
     Route: 058
     Dates: start: 20250205
  4. OMNITROPE [Suspect]
     Active Substance: SOMATROPIN
     Dosage: 2 MG , QD
     Route: 058
     Dates: start: 20250205

REACTIONS (5)
  - Injection site pain [Unknown]
  - Injection site erythema [Unknown]
  - Injection site haemorrhage [Unknown]
  - Device leakage [Unknown]
  - Incorrect dose administered by device [Unknown]

NARRATIVE: CASE EVENT DATE: 20250205
